FAERS Safety Report 7093021-4 (Version None)
Quarter: 2010Q4

REPORT INFORMATION
  Report Type: 
  Country: None (occurrence: None)
  Receive Date: 20101018
  Receipt Date: 20100426
  Transmission Date: 20110411
  Serious: Yes (Life-Threatening)
  Sender: FDA-Public Use
  Company Number: 2010S1000286

PATIENT
  Age: 67 Year
  Sex: Female

DRUGS (12)
  1. DARVOCET-N 100 [Suspect]
     Dosage: PO
     Route: 048
     Dates: start: 20100101
  2. ROXICODONE [Suspect]
     Dosage: PO
     Route: 048
     Dates: start: 20100101
  3. DEXTROPROPOXYPHENE [Concomitant]
  4. NAPSILATE [Concomitant]
  5. ACETAMINOPHEN [Concomitant]
  6. ATENOLOL [Concomitant]
  7. OMEPRAZOLE [Concomitant]
  8. GLIPIZIDE [Concomitant]
  9. INSULIN [Concomitant]
  10. FUROSEMIDE [Concomitant]
  11. SIMVASTATIN [Concomitant]
  12. LEVOTHYROXINE SODIUM [Concomitant]

REACTIONS (2)
  - CARDIO-RESPIRATORY ARREST [None]
  - CONFUSIONAL STATE [None]
